FAERS Safety Report 7377769-X (Version None)
Quarter: 2011Q1

REPORT INFORMATION
  Report Type: 
  Country: None (occurrence: None)
  Receive Date: 20110328
  Receipt Date: 20110322
  Transmission Date: 20110831
  Serious: Yes (Hospitalization, Other)
  Sender: FDA-Public Use
  Company Number: US-PFIZER INC-2010072345

PATIENT
  Sex: Female

DRUGS (2)
  1. CHANTIX [Suspect]
     Indication: SMOKING CESSATION THERAPY
     Dosage: 1 CARD OF 0.5MG AND 3 CARDS OF 1MG
     Dates: start: 20080601, end: 20080601
  2. CHANTIX [Suspect]

REACTIONS (7)
  - PARANOIA [None]
  - ABNORMAL DREAMS [None]
  - SUICIDE ATTEMPT [None]
  - INTENTIONAL OVERDOSE [None]
  - ALCOHOL ABUSE [None]
  - DEPRESSION [None]
  - LIVER INJURY [None]
